FAERS Safety Report 7671430-X (Version None)
Quarter: 2011Q3

REPORT INFORMATION
  Report Type: 
  Country: None (occurrence: None)
  Receive Date: 20110809
  Receipt Date: 20110726
  Transmission Date: 20111222
  Serious: Yes (Hospitalization, Other)
  Sender: FDA-Public Use
  Company Number: US-AMGEN-USACT2011038372

PATIENT
  Age: 67 Year
  Sex: Male
  Weight: 82.7 kg

DRUGS (74)
  1. DIPHENHYDRAMINE HCL [Concomitant]
     Dosage: 25 MG
     Route: 042
     Dates: start: 20110508, end: 20110707
  2. DOCUSATE SODIUM [Concomitant]
     Indication: CONSTIPATION
     Dosage: 100 MG, UNK
     Route: 048
     Dates: start: 20110530, end: 20110707
  3. LOMOTIL [Concomitant]
     Indication: DIARRHOEA
     Dosage: 205 MG, UNK
     Route: 048
     Dates: start: 20110508, end: 20110712
  4. POTASSIUM CHLORIDE [Concomitant]
     Indication: HYPOKALAEMIA
     Dosage: 20 MEQ
     Route: 048
     Dates: start: 20110511, end: 20110718
  5. POTASSIUM CHLORIDE [Concomitant]
     Indication: ELECTROLYTE SUBSTITUTION THERAPY
  6. ACETAMINOPHEN [Concomitant]
     Indication: PYREXIA
     Dosage: 650 MG
     Route: 048
     Dates: start: 20110507, end: 20110707
  7. DIPHENOXYLATE HCL AND ATROPINE SULFATE [Concomitant]
     Indication: DIARRHOEA
     Dosage: UNK
     Route: 048
     Dates: start: 20110609, end: 20110614
  8. VINCRISTINE [Concomitant]
     Dosage: UNK UNK, UNK
     Dates: start: 20110609
  9. DEXAMETHASONE [Concomitant]
     Dosage: UNK UNK, UNK
     Dates: start: 20110609
  10. NEULASTA [Concomitant]
     Indication: FEBRILE NEUTROPENIA
     Dosage: 6 MG
     Route: 058
     Dates: start: 20110523, end: 20110714
  11. BACTRIUM DS [Concomitant]
     Indication: INFECTION
     Dosage: UNK
     Route: 048
     Dates: start: 20110604, end: 20110712
  12. BACTRIUM DS [Concomitant]
     Route: 048
     Dates: start: 20110608, end: 20110711
  13. ACYCLOVIR [Concomitant]
     Dosage: 400 MG
     Route: 048
     Dates: start: 20100719
  14. HYTRIN [Concomitant]
     Indication: BENIGN PROSTATIC HYPERPLASIA
     Dosage: 10 MG, UNK
     Route: 048
     Dates: start: 20110508
  15. ZOMETA [Concomitant]
     Indication: HYPERCALCAEMIA OF MALIGNANCY
     Dosage: 3.2 MG
     Route: 042
     Dates: start: 20110514, end: 20110514
  16. FLUDARABINE PHOSPHATE [Concomitant]
     Dosage: UNK UNK, UNK
     Dates: start: 20110517, end: 20110609
  17. METHYLPREDNISOLONE [Concomitant]
     Dosage: 50 MG, UNK
     Route: 042
     Dates: start: 20110707, end: 20110709
  18. MAALOX PLUS [Concomitant]
     Indication: DYSPEPSIA
     Dosage: 15 ML, UNK
     Route: 048
     Dates: start: 20110508, end: 20110712
  19. DEXTROSE WATER [Concomitant]
     Dosage: 1000 ML
     Route: 042
     Dates: start: 20110517, end: 20110614
  20. DEXTROSE WATER [Concomitant]
     Dosage: 1000 ML, UNK
     Route: 042
     Dates: start: 20110608, end: 20110614
  21. MICAFUNGIN [Concomitant]
     Dosage: 100 MG, UNK
     Route: 042
     Dates: start: 20110520, end: 20110616
  22. PEPCID [Concomitant]
     Dosage: 20 MG, UNK
     Route: 048
     Dates: start: 20110508, end: 20110608
  23. AVELOX [Concomitant]
     Dosage: 400 MG
     Route: 048
     Dates: start: 20110609, end: 20110614
  24. LASIX [Concomitant]
     Indication: FLUID RETENTION
     Dosage: UNK UNK, UNK
     Dates: start: 20110601, end: 20110712
  25. LASIX [Concomitant]
     Indication: FLUID OVERLOAD
     Dates: start: 20110608, end: 20110706
  26. CEFEPIME [Concomitant]
     Indication: INFECTION
     Dosage: 1 G
     Route: 042
     Dates: start: 20110707, end: 20110712
  27. SODIUM ACETATE [Concomitant]
     Dosage: 75 MEQ, UNK
     Route: 042
     Dates: start: 20110707, end: 20110712
  28. ONDANSETRON [Concomitant]
     Indication: NAUSEA
     Dosage: 4 MG
     Dates: start: 20110531, end: 20110628
  29. LACTULOSE [Concomitant]
     Indication: CONSTIPATION
     Dosage: 15 ML
     Route: 048
     Dates: start: 20110604
  30. CIPROFLOXACIN HCL [Concomitant]
     Dosage: 250 MG
     Route: 048
     Dates: start: 20110531, end: 20110615
  31. TEMAZEPAM [Concomitant]
     Dosage: 15 MG
     Route: 048
     Dates: start: 20110604, end: 20110614
  32. MAGNESIUM CITRATE [Concomitant]
     Indication: CONSTIPATION
     Dosage: UNK
     Route: 048
     Dates: start: 20110625, end: 20110625
  33. MEGACE [Concomitant]
     Indication: DECREASED APPETITE
     Dosage: 400 MG
     Route: 048
     Dates: start: 20110707
  34. TRAMADOL HCL [Concomitant]
     Indication: PAIN
     Dosage: 50 MG, UNK
     Route: 048
     Dates: start: 20110511, end: 20110712
  35. METOPROLOL TARTRATE [Concomitant]
     Indication: HYPERTENSION
     Dosage: 5 MG
     Route: 042
     Dates: start: 20110531, end: 20110625
  36. LEUCOVORIN CALCIUM [Concomitant]
     Dosage: 15 MG, UNK
     Route: 042
     Dates: start: 20110710, end: 20110712
  37. HYDRALAZINE HCL [Concomitant]
     Indication: HYPERTENSION
     Dosage: 10 ML, UNK
     Route: 042
     Dates: start: 20110508, end: 20110607
  38. LACTOSE [Concomitant]
     Indication: CONSTIPATION
     Dosage: 30 MG
     Route: 048
     Dates: start: 20110601, end: 20110601
  39. MAGNESIUM SULFATE [Concomitant]
     Dosage: 8 MEQ, UNK
     Route: 042
     Dates: start: 20110511, end: 20110607
  40. PHOSPHATE [Concomitant]
     Dosage: UNK
     Route: 048
     Dates: start: 20110508, end: 20110508
  41. DOXORUBICIN HCL [Concomitant]
     Dosage: UNK UNK, UNK
     Dates: start: 20110609
  42. CYTARABINE [Concomitant]
     Dosage: UNK UNK, UNK
     Dates: start: 20110517
  43. CYCLOPHOSPHAMIDE [Concomitant]
     Dosage: UNK UNK, UNK
     Dates: start: 20110609, end: 20110712
  44. SODIUM CHLORIDE [Concomitant]
     Indication: RENAL FAILURE
     Dosage: 80 ML, UNK
     Route: 042
     Dates: start: 20110531, end: 20110707
  45. PREDNISOLONE [Concomitant]
     Dosage: UNK
     Route: 047
     Dates: start: 20110707, end: 20110713
  46. GUAIFENESIN [Concomitant]
     Indication: COUGH
     Dosage: 5 ML, UNK
     Route: 048
     Dates: start: 20110712
  47. FLAGYL [Concomitant]
     Dosage: 500 MG
     Route: 048
     Dates: start: 20110713
  48. AMLODIPINE [Concomitant]
     Indication: HYPERTENSION
     Dosage: 5 MG
     Route: 048
     Dates: start: 20110509, end: 20110521
  49. PROMETHAZINE [Concomitant]
     Dosage: 12.5 MG
     Route: 042
     Dates: start: 20110531, end: 20110614
  50. POTASSIUM PHOSPHATES [Concomitant]
     Dosage: UNK
     Route: 042
     Dates: start: 20110606, end: 20110606
  51. REGLAN [Concomitant]
     Indication: NAUSEA
     Dosage: 10 MG
     Route: 042
     Dates: start: 20110625, end: 20110625
  52. OXALIPLATIN [Concomitant]
     Dosage: UNK UNK, UNK
     Dates: start: 20110517, end: 20110609
  53. SODIUM CHLORIDE [Concomitant]
     Indication: DEHYDRATION
  54. ACETAZOLAMIDE [Concomitant]
     Dosage: 250 MG, UNK
     Route: 048
     Dates: start: 20110707, end: 20110711
  55. MEPERIDINE HCL [Concomitant]
     Dosage: 25 MG
     Route: 042
     Dates: start: 20110707
  56. SENNOSIDE [Concomitant]
     Indication: CONSTIPATION
     Dosage: UNK
     Route: 048
     Dates: start: 20110707
  57. ZITHROMAX [Concomitant]
     Indication: OROPHARYNGEAL PAIN
     Dosage: 500 MG
     Route: 048
     Dates: start: 20110713, end: 20110717
  58. ROCEPHIN [Concomitant]
     Indication: INFECTION
     Dosage: 2 G
     Route: 042
     Dates: start: 20110625, end: 20110625
  59. DENOSUMAB [Suspect]
     Indication: HYPERCALCAEMIA OF MALIGNANCY
  60. RITUXAN [Concomitant]
     Dosage: UNK
     Dates: start: 20110609
  61. METHOTREXATE [Concomitant]
     Dosage: UNK
     Dates: start: 20110712
  62. HYDROCORTISONE [Concomitant]
     Dosage: 25 MG
     Route: 042
     Dates: start: 20110531, end: 20110712
  63. METOPROLOL TARTRATE [Concomitant]
  64. PROCHLORPERAZINE [Concomitant]
     Indication: NAUSEA
     Dosage: 10 MG
     Route: 048
     Dates: start: 20110608, end: 20110712
  65. ALLOPURINOL [Concomitant]
     Dosage: 300 MG
     Route: 048
     Dates: start: 20110712, end: 20110717
  66. BACTRIUM DS [Concomitant]
     Dosage: 1 UNK, UNK
     Route: 048
     Dates: start: 20110604, end: 20110607
  67. PRILOSEC [Concomitant]
     Indication: GASTROOESOPHAGEAL REFLUX DISEASE
     Dosage: 40 MG, UNK
     Route: 048
     Dates: start: 20110531, end: 20110607
  68. SODIUM BICARBONATE [Concomitant]
     Indication: DENTAL DISORDER PROPHYLAXIS
     Dosage: 650 MG, UNK
     Route: 048
     Dates: start: 20110531, end: 20110711
  69. DEXTROMETHORPHAN W/GUAIFENESIN [Concomitant]
     Dosage: 10 MG
     Route: 048
     Dates: start: 20110508, end: 20110607
  70. DEMEROL [Concomitant]
     Indication: PAIN
     Dosage: 25 MG
     Route: 042
     Dates: start: 20110519, end: 20110519
  71. MIDAZOLAM HCL [Concomitant]
     Indication: ANXIETY
     Dosage: 2 MG
     Route: 048
     Dates: start: 20110517, end: 20110517
  72. PANTOPRAZOLE [Concomitant]
     Dosage: 40 MG, UNK
     Route: 048
     Dates: start: 20110519, end: 20110521
  73. BLOOD CELLS, PACKED HUMAN [Concomitant]
     Indication: ANAEMIA
     Dosage: UNK
     Route: 042
     Dates: start: 20110613, end: 20110621
  74. RESTORIL [Concomitant]
     Dosage: 15 MG, UNK
     Route: 048
     Dates: start: 20110621

REACTIONS (3)
  - COLITIS [None]
  - DYSPNOEA [None]
  - FAILURE TO THRIVE [None]
